FAERS Safety Report 6160428-9 (Version None)
Quarter: 2009Q2

REPORT INFORMATION
  Report Type: 
  Country: None (occurrence: None)
  Receive Date: 20090420
  Receipt Date: 20090420
  Transmission Date: 20091009
  Serious: Yes (Hospitalization, Disabling, Other)
  Sender: FDA-Public Use
  Company Number: JP-B.I. PHARMACEUTICALS,INC./RIDGEFIELD-2009-BP-04054NB

PATIENT
  Sex: Female
  Weight: 68 kg

DRUGS (6)
  1. MICARDIS [Suspect]
     Indication: HYPERTENSION
     Dosage: 40MG
     Route: 048
     Dates: start: 20061212, end: 20080903
  2. AMLODIN [Concomitant]
     Indication: HYPERTENSION
     Dosage: 5MG
     Route: 048
  3. LIVALO [Concomitant]
     Indication: HYPERLIPIDAEMIA
     Dosage: 1MG
     Route: 048
  4. OMEPRAL [Concomitant]
     Indication: PROPHYLAXIS
     Dosage: 20MG
     Route: 048
     Dates: start: 20061212
  5. URSO 250 [Concomitant]
     Indication: HEPATIC FUNCTION ABNORMAL
     Dosage: 300MG
     Route: 048
  6. GLIMICRON [Concomitant]
     Indication: DIABETES MELLITUS
     Dosage: 120MG
     Route: 048
     Dates: start: 20070306

REACTIONS (1)
  - PANCREATIC CARCINOMA [None]
